FAERS Safety Report 7274652-5 (Version None)
Quarter: 2011Q1

REPORT INFORMATION
  Report Type: 
  Country: None (occurrence: None)
  Receive Date: 20110204
  Receipt Date: 20110128
  Transmission Date: 20110831
  Serious: Yes (Hospitalization)
  Sender: FDA-Public Use
  Company Number: FR-B.I. PHARMACEUTICALS,INC./RIDGEFIELD-2011-FF-00076FF

PATIENT
  Sex: Male

DRUGS (8)
  1. CARDENSIEL [Suspect]
     Indication: CARDIAC FAILURE
     Dosage: 3.75 MG
     Route: 048
  2. RAMIPRIL [Suspect]
     Dosage: 5 MG
     Route: 048
  3. SPIRIVA [Suspect]
     Indication: CHRONIC OBSTRUCTIVE PULMONARY DISEASE
     Route: 055
  4. PREVISCAN [Suspect]
     Indication: ATRIAL FIBRILLATION
     Route: 048
     Dates: end: 20101111
  5. LASIX [Suspect]
     Dosage: 40 MG
     Route: 048
  6. DIGITALINE NATIVELLE [Suspect]
     Indication: CARDIAC FAILURE
     Route: 065
  7. EUPANTOL [Suspect]
     Dosage: 40 MG
     Route: 048
  8. ZOXAN LP [Suspect]
     Indication: PROSTATIC ADENOMA
     Dosage: 4 MG
     Route: 048

REACTIONS (2)
  - PSEUDOPOLYP [None]
  - NORMOCHROMIC NORMOCYTIC ANAEMIA [None]
